FAERS Safety Report 5109390-8 (Version None)
Quarter: 2006Q3

REPORT INFORMATION
  Report Type: 
  Country: None (occurrence: None)
  Receive Date: 20060918
  Receipt Date: 20060908
  Transmission Date: 20061208
  Serious: Yes (Disabling)
  Sender: FDA-Public Use
  Company Number: 1-14219610/MED-06172

PATIENT
  Age: 50 Year
  Sex: Female
  Weight: 71.6 kg

DRUGS (1)
  1. SULFAMETHOXAZOLE + TRIMETHOPRIM [Suspect]
     Indication: UPPER RESPIRATORY TRACT INFECTION
     Dosage: 10 DAY THERAPY, ORAL
     Route: 048
     Dates: start: 19961201, end: 19961201

REACTIONS (9)
  - ARTHRALGIA [None]
  - DRUG HYPERSENSITIVITY [None]
  - EYE SWELLING [None]
  - FIBROMYALGIA [None]
  - MOVEMENT DISORDER [None]
  - OEDEMA PERIPHERAL [None]
  - PAIN [None]
  - RASH [None]
  - SWELLING FACE [None]
